FAERS Safety Report 5976177-3 (Version None)
Quarter: 2008Q4

REPORT INFORMATION
  Report Type: 
  Country: None (occurrence: None)
  Receive Date: 20081202
  Receipt Date: 20081120
  Transmission Date: 20090506
  Serious: Yes (Hospitalization)
  Sender: FDA-Public Use
  Company Number: US-SANOFI-SYNTHELABO-A03200804781

PATIENT
  Sex: Female

DRUGS (3)
  1. XELODA [Concomitant]
     Indication: DRUG USE FOR UNKNOWN INDICATION
     Dosage: UNK
     Route: 065
  2. ELOXATIN [Suspect]
     Indication: RECTAL CANCER
     Route: 042
  3. ELOXATIN [Suspect]
     Indication: COLON CANCER
     Route: 042

REACTIONS (4)
  - CARDIAC FAILURE CONGESTIVE [None]
  - DYSPNOEA [None]
  - NAUSEA [None]
  - VOMITING [None]
